FAERS Safety Report 8232728-X (Version None)
Quarter: 2012Q1

REPORT INFORMATION
  Report Type: 
  Country: None (occurrence: None)
  Receive Date: 20120323
  Receipt Date: 20120314
  Transmission Date: 20120608
  Serious: Yes (Hospitalization, Congenital Anomaly, Other)
  Sender: FDA-Public Use
  Company Number: DE-ABBOTT-12P-062-0915799-00

PATIENT
  Sex: Male

DRUGS (1)
  1. VALPROATE SODIUM [Suspect]
     Indication: MATERNAL EXPOSURE TIMING UNSPECIFIED
     Route: 063

REACTIONS (12)
  - ATRIAL SEPTAL DEFECT [None]
  - HYPOCALCAEMIA [None]
  - FOETAL EXPOSURE DURING PREGNANCY [None]
  - PERICARDIAL EFFUSION [None]
  - HYPOGLYCAEMIA NEONATAL [None]
  - BLOOD PARATHYROID HORMONE INCREASED [None]
  - ANKYLOGLOSSIA CONGENITAL [None]
  - PATENT DUCTUS ARTERIOSUS [None]
  - BUNDLE BRANCH BLOCK RIGHT [None]
  - CARDIAC SEPTAL DEFECT [None]
  - TRICUSPID VALVE INCOMPETENCE [None]
  - CONGENITAL AORTIC ANOMALY [None]
